FAERS Safety Report 9280358 (Version 1)
Quarter: 2013Q2

REPORT INFORMATION
  Report Type: Spontaneous
  Country: ES (occurrence: ES)
  Receive Date: 20130509
  Receipt Date: 20130509
  Transmission Date: 20140414
  Serious: Yes (Other)
  Sender: FDA-Public Use
  Company Number: ES-009507513-1304ESP017270

PATIENT
  Sex: 0

DRUGS (1)
  1. ONCOTICE [Suspect]
     Indication: TRANSITIONAL CELL CARCINOMA

REACTIONS (2)
  - Drug ineffective [Unknown]
  - Transitional cell carcinoma [Unknown]
